FAERS Safety Report 10993553 (Version 2)
Quarter: 2015Q2

REPORT INFORMATION
  Report Type: Report from Study
  Country: US (occurrence: US)
  Receive Date: 20150407
  Receipt Date: 20150522
  Transmission Date: 20150821
  Serious: Yes (Death, Hospitalization)
  Sender: FDA-Public Use
  Company Number: US-ROCHE-1560869

PATIENT
  Age: 76 Year
  Sex: Female

DRUGS (2)
  1. BEVACIZUMAB [Suspect]
     Active Substance: BEVACIZUMAB
     Indication: GLIOBLASTOMA
     Dosage: LAST DOSE PRIOR TO SAE: 01/FEB/2011
     Route: 065
     Dates: start: 20101221
  2. TEMOZOLOMIDE. [Suspect]
     Active Substance: TEMOZOLOMIDE
     Indication: GLIOBLASTOMA
     Dosage: LAST DOSE PRIOR TO SAE: 22/JAN/2011
     Route: 065
     Dates: start: 20101221

REACTIONS (4)
  - Mental status changes [Unknown]
  - Hypoglycaemia [Unknown]
  - Cardio-respiratory arrest [Fatal]
  - Pneumonia [Unknown]

NARRATIVE: CASE EVENT DATE: 20110205
